FAERS Safety Report 10375306 (Version 1)
Quarter: 2014Q1

REPORT INFORMATION
  Report Type: Spontaneous
  Country: US (occurrence: None)
  Receive Date: 20140306
  Receipt Date: 20140306
  Transmission Date: 20141002
  Serious: Yes (Other)
  Sender: FDA-Public Use
  Company Number: 163-21880-13041458

PATIENT
  Age: 77 Year
  Sex: Male
  Weight: 58.06 kg

DRUGS (1)
  1. REVLIMID (LENALIDOMIDE) (CAPSULES) [Suspect]
     Indication: NEOPLASM
     Route: 048
     Dates: start: 20130209

REACTIONS (1)
  - Thrombocytopenia [None]
